FAERS Safety Report 21474302 (Version 1)
Quarter: 2022Q4

REPORT INFORMATION
  Report Type: Spontaneous
  Country: SA (occurrence: SA)
  Receive Date: 20221018
  Receipt Date: 20221018
  Transmission Date: 20230112
  Serious: Yes (Hospitalization, Other)
  Sender: FDA-Public Use
  Company Number: SA-BIOMARINAP-SA-2022-146235

PATIENT

DRUGS (1)
  1. NAGLAZYME [Suspect]
     Active Substance: GALSULFASE
     Indication: Mucopolysaccharidosis VI
     Dosage: UNK, QW
     Route: 042

REACTIONS (10)
  - Respiratory failure [Unknown]
  - Seizure [Unknown]
  - Hydrocephalus [Unknown]
  - Pyrexia [Unknown]
  - Otorrhoea [Unknown]
  - Corneal opacity [Unknown]
  - Bedridden [Unknown]
  - Intervertebral disc space narrowing [Unknown]
  - Medullary compression syndrome [Unknown]
  - Ventricular hypertrophy [Unknown]
